FAERS Safety Report 6174240-8 (Version None)
Quarter: 2009Q2

REPORT INFORMATION
  Report Type: 
  Country: None (occurrence: None)
  Receive Date: 20090430
  Receipt Date: 20080317
  Transmission Date: 20091009
  Serious: No
  Sender: FDA-Public Use
  Company Number: US-ASTRAZENECA-2008UW05411

PATIENT
  Age: 82 Year
  Sex: Female
  Weight: 68.9 kg

DRUGS (7)
  1. NEXIUM [Suspect]
     Indication: GASTROOESOPHAGEAL REFLUX DISEASE
     Route: 048
     Dates: start: 20080301
  2. SYNTHROID [Concomitant]
  3. REMERON [Concomitant]
  4. ATIVAN [Concomitant]
  5. COLACE [Concomitant]
  6. LISINOPRIL [Concomitant]
     Route: 048
  7. REGLAN [Concomitant]

REACTIONS (5)
  - ANORECTAL DISCOMFORT [None]
  - ASTHENIA [None]
  - DIARRHOEA [None]
  - GASTROOESOPHAGEAL REFLUX DISEASE [None]
  - LETHARGY [None]
